FAERS Safety Report 9750336 (Version 1)
Quarter: 2013Q4

REPORT INFORMATION
  Report Type: Spontaneous
  Country: DK (occurrence: FR)
  Receive Date: 20131212
  Receipt Date: 20131212
  Transmission Date: 20140711
  Serious: Yes (Hospitalization)
  Sender: FDA-Public Use
  Company Number: FR-FRI-1000052172

PATIENT
  Age: 75 Year
  Sex: Male

DRUGS (6)
  1. ESCITALOPRAM [Suspect]
     Dosage: 1 DF
     Route: 048
     Dates: start: 201102, end: 20130926
  2. ZOCOR [Suspect]
     Dosage: 1 DF
     Route: 048
     Dates: start: 201102, end: 20130926
  3. PREVISCAN [Suspect]
     Route: 048
     Dates: start: 201102, end: 20130926
  4. TRIATEC [Concomitant]
     Dosage: 1 DF
     Route: 048
     Dates: start: 201102, end: 20130926
  5. ZANIDIP [Concomitant]
     Dosage: 1 DF
     Route: 048
     Dates: start: 201102, end: 20130926
  6. BETASERC [Concomitant]
     Route: 048
     Dates: start: 201102, end: 20130926

REACTIONS (2)
  - Subdural haematoma [Recovered/Resolved]
  - Drug interaction [Recovered/Resolved]
